FAERS Safety Report 6443984-2 (Version None)
Quarter: 2009Q4

REPORT INFORMATION
  Report Type: 
  Country: None (occurrence: None)
  Receive Date: 20091117
  Receipt Date: 20091117
  Transmission Date: 20100525
  Serious: Yes (Life-Threatening, Hospitalization)
  Sender: FDA-Public Use
  Company Number: None

PATIENT
  Age: 33 Year
  Sex: Female
  Weight: 63.5036 kg

DRUGS (1)
  1. TREXALL [Suspect]
     Indication: RHEUMATOID ARTHRITIS
     Dosage: 15 MG 1 X DAY PO
     Route: 048
     Dates: start: 20050701, end: 20051005

REACTIONS (4)
  - INCORRECT DOSE ADMINISTERED [None]
  - MENTAL DISORDER [None]
  - SKIN LACERATION [None]
  - SUICIDE ATTEMPT [None]
